FAERS Safety Report 23203690 (Version 1)
Quarter: 2023Q4

REPORT INFORMATION
  Report Type: Report from Study
  Country: JP (occurrence: JP)
  Receive Date: 20231120
  Receipt Date: 20231120
  Transmission Date: 20240110
  Serious: Yes (Death, Hospitalization)
  Sender: FDA-Public Use
  Company Number: JP-CHUGAI-2023020715

PATIENT
  Age: 76 Year
  Sex: Male
  Weight: 56.5 kg

DRUGS (6)
  1. ATEZOLIZUMAB [Suspect]
     Active Substance: ATEZOLIZUMAB
     Indication: Hepatocellular carcinoma
     Dosage: 1200 MILLIGRAM, ONCE/3WEEKS?MOST RECENT DOSE RECEIVED ON 16/MAR/2023
     Route: 041
     Dates: start: 20221108
  2. BEVACIZUMAB [Suspect]
     Active Substance: BEVACIZUMAB
     Indication: Hepatocellular carcinoma
     Dosage: 750 MILLIGRAM, ONCE/3WEEKS?MOST RECENT DOSE RECEIVED ON 09/FEB/2023
     Route: 041
     Dates: start: 20221108
  3. SAMSCA [Concomitant]
     Active Substance: TOLVAPTAN
     Dosage: 7.5 MILLIGRAM, QD
     Route: 048
     Dates: start: 20230511
  4. FUROSEMIDE [Concomitant]
     Active Substance: FUROSEMIDE
     Dosage: 40 MILLIGRAM, QD
     Route: 048
     Dates: start: 20230418
  5. URSODIOL [Concomitant]
     Active Substance: URSODIOL
     Dosage: 200 MILLIGRAM, TID
     Route: 048
     Dates: start: 20230422
  6. AMINO ACIDS, SOURCE UNSPECIFIED [Concomitant]
     Active Substance: AMINO ACIDS, SOURCE UNSPECIFIED
     Dosage: 4.15 GRAM, TID
     Route: 048
     Dates: start: 20230412

REACTIONS (4)
  - Infection [Fatal]
  - Renal failure [Fatal]
  - Biliary tract disorder [Recovered/Resolved]
  - Pulmonary oedema [Recovered/Resolved]

NARRATIVE: CASE EVENT DATE: 20230516
